FAERS Safety Report 19696511 (Version 3)
Quarter: 2021Q3

REPORT INFORMATION
  Report Type: Report from Study
  Country: US (occurrence: US)
  Receive Date: 20210813
  Receipt Date: 20210826
  Transmission Date: 20211014
  Serious: Yes (Other)
  Sender: FDA-Public Use
  Company Number: US-AUROBINDO-AUR-APL-2021-034293

PATIENT
  Age: 44 Year
  Sex: Male
  Weight: 76 kg

DRUGS (2)
  1. FOLOTYN [Suspect]
     Active Substance: PRALATREXATE
     Indication: ANAPLASTIC LARGE-CELL LYMPHOMA
     Dosage: UNK
     Route: 065
  2. FOLOTYN [Suspect]
     Active Substance: PRALATREXATE
     Dosage: 30 WITH UNKNOWN UNITS (SECOND LINE TREATMENT)
     Route: 065
     Dates: start: 202002

REACTIONS (1)
  - Peripheral T-cell lymphoma unspecified recurrent [Unknown]
